FAERS Safety Report 13542667 (Version 1)
Quarter: 2017Q2

REPORT INFORMATION
  Report Type: Spontaneous
  Country: US (occurrence: US)
  Receive Date: 20170512
  Receipt Date: 20170512
  Transmission Date: 20170830
  Serious: No
  Sender: FDA-Public Use
  Company Number: US-ROCHE-714540

PATIENT
  Age: 83 Year
  Sex: Female
  Weight: 70.8 kg

DRUGS (7)
  1. KETOROLAC [Concomitant]
     Active Substance: KETOROLAC\KETOROLAC TROMETHAMINE
     Route: 065
  2. CALCITONIN [Concomitant]
     Active Substance: CALCITONIN
     Route: 065
  3. NEXIUM [Concomitant]
     Active Substance: ESOMEPRAZOLE MAGNESIUM
     Route: 065
  4. AVASTIN [Suspect]
     Active Substance: BEVACIZUMAB
     Indication: MACULAR DEGENERATION
     Dosage: FREQUENCY: MONTHLY.
     Route: 050
  5. DETROL LA [Concomitant]
     Active Substance: TOLTERODINE TARTRATE
     Route: 065
  6. NITROFURANTOIN. [Concomitant]
     Active Substance: NITROFURANTOIN
     Route: 065
  7. TRIAMTERENE. [Concomitant]
     Active Substance: TRIAMTERENE
     Route: 065

REACTIONS (1)
  - Dysgeusia [Unknown]
